FAERS Safety Report 7458485-2 (Version None)
Quarter: 2011Q2

REPORT INFORMATION
  Report Type: 
  Country: None (occurrence: None)
  Receive Date: 20110504
  Receipt Date: 20110421
  Transmission Date: 20111010
  Serious: Yes (Other)
  Sender: FDA-Public Use
  Company Number: GB-GENENTECH-317697

PATIENT
  Sex: Female
  Weight: 109 kg

DRUGS (12)
  1. LISINOPRIL [Concomitant]
     Indication: HYPERTENSION
     Dosage: 2.5 MG, UNK
     Route: 048
     Dates: start: 20110122, end: 20110209
  2. TRAMADOL [Concomitant]
     Indication: RHEUMATOID ARTHRITIS
     Dosage: 50 MG, UNK
     Route: 048
     Dates: start: 20100201
  3. LISINOPRIL [Concomitant]
     Dosage: 15 MG, UNK
     Route: 048
     Dates: start: 20110331
  4. MORPHINE SULFATE [Concomitant]
     Indication: RHEUMATOID ARTHRITIS
     Dosage: 30 MG, UNK
     Route: 048
     Dates: start: 20080101
  5. MORPHINE SULFATE [Concomitant]
     Dosage: 30 MG, UNK
     Route: 048
     Dates: start: 20100901, end: 20110330
  6. MORPHINE SULFATE [Concomitant]
     Dosage: 90 MG, UNK
     Route: 048
     Dates: start: 20110331
  7. DICLOFENAC [Concomitant]
     Indication: RHEUMATOID ARTHRITIS
     Dosage: 150 MG, UNK
     Route: 048
     Dates: start: 20080101
  8. PARACETAMOL [Concomitant]
     Indication: RHEUMATOID ARTHRITIS
     Dosage: 1000 MG, UNK
     Route: 048
     Dates: start: 20080101
  9. RITUXIMAB [Suspect]
     Indication: RHEUMATOID ARTHRITIS
     Dosage: 1000 MG, UNK
     Route: 042
     Dates: start: 20110111, end: 20110111
  10. ACETAMINOPHEN W/ CODEINE [Concomitant]
     Indication: RHEUMATOID ARTHRITIS
     Dosage: UNK
     Route: 048
  11. LISINOPRIL [Concomitant]
     Dosage: 5 MG, UNK
     Route: 048
     Dates: start: 20110210, end: 20110330
  12. RITUXIMAB [Suspect]
     Dosage: 1000 MG, UNK
     Route: 042
     Dates: start: 20110125, end: 20110125

REACTIONS (1)
  - LIVER FUNCTION TEST ABNORMAL [None]
